FAERS Safety Report 8933518 (Version 1)
Quarter: 2012Q4

REPORT INFORMATION
  Report Type: 
  Country: US (occurrence: US)
  Receive Date: 20121128
  Receipt Date: 20121128
  Transmission Date: 20130627
  Serious: No
  Sender: FDA-Public Use
  Company Number: US-BAYER-2012-124832

PATIENT
  Sex: Female

DRUGS (1)
  1. AVELOX [Suspect]
     Dosage: 1 DF, QD
     Dates: start: 20120507

REACTIONS (6)
  - Rash erythematous [None]
  - Pain [None]
  - Feeling abnormal [None]
  - Burning sensation [None]
  - Scar [None]
  - Paraesthesia [None]
